FAERS Safety Report 5824675-5 (Version None)
Quarter: 2008Q3

REPORT INFORMATION
  Report Type: 
  Country: None (occurrence: None)
  Receive Date: 20080728
  Receipt Date: 20080724
  Transmission Date: 20090109
  Serious: Yes (Hospitalization)
  Sender: FDA-Public Use
  Company Number: US-EISAI MEDICAL RESEARCH-E2090-00513-SPO-US

PATIENT
  Age: 14 Year
  Sex: Male

DRUGS (5)
  1. ZONEGRAN [Suspect]
     Indication: CONVULSION
     Route: 048
     Dates: start: 20060101
  2. ZONEGRAN [Suspect]
     Route: 048
  3. ZONEGRAN [Suspect]
     Route: 048
  4. RISPERDAL [Concomitant]
  5. CLONAZEPAM [Concomitant]

REACTIONS (2)
  - EMPYEMA [None]
  - PNEUMONIA [None]
